FAERS Safety Report 6283492-5 (Version None)
Quarter: 2009Q3

REPORT INFORMATION
  Report Type: 
  Country: None (occurrence: None)
  Receive Date: 20090721
  Receipt Date: 20090721
  Transmission Date: 20100115
  Serious: No
  Sender: FDA-Public Use
  Company Number: None

PATIENT
  Age: 45 Year
  Sex: Male
  Weight: 122.4712 kg

DRUGS (1)
  1. LYRICA [Suspect]
     Indication: FIBROMYALGIA
     Dosage: DAILY PO EARLY 2008 THRU MAY 2008
     Route: 048
     Dates: start: 20080101, end: 20080501

REACTIONS (3)
  - ASTIGMATISM [None]
  - DIZZINESS [None]
  - VISION BLURRED [None]
